FAERS Safety Report 9216761 (Version 1)
Quarter: 2013Q2

REPORT INFORMATION
  Report Type: Spontaneous
  Country: FR (occurrence: FR)
  Receive Date: 20130408
  Receipt Date: 20130408
  Transmission Date: 20140414
  Serious: Yes (Hospitalization)
  Sender: FDA-Public Use
  Company Number: FR-PFIZER INC-2013108516

PATIENT
  Age: 58 Year
  Sex: Male

DRUGS (5)
  1. ATENOLOL [Suspect]
     Indication: ACUTE CORONARY SYNDROME
     Dosage: UNK
     Route: 048
     Dates: start: 20121217
  2. CRESTOR [Suspect]
     Indication: CARDIOVASCULAR EVENT PROPHYLAXIS
     Dosage: 20 MG DAILY
     Route: 048
     Dates: start: 20121217
  3. BRILIQUE [Suspect]
     Indication: ACUTE CORONARY SYNDROME
     Dosage: 90 MG, 2X/DAY
     Route: 048
     Dates: start: 20121217
  4. KARDEGIC [Suspect]
     Indication: ACUTE CORONARY SYNDROME
     Dosage: 75 MG DAILY
     Route: 048
     Dates: start: 20121217
  5. COTAREG [Suspect]
     Indication: ACUTE CORONARY SYNDROME
     Dosage: 160/25 MG DAILY
     Route: 048
     Dates: start: 20121217

REACTIONS (1)
  - Haematoma [Unknown]
